FAERS Safety Report 9140487 (Version 1)
Quarter: 2013Q1

REPORT INFORMATION
  Report Type: Spontaneous
  Country: GB (occurrence: GB)
  Receive Date: 20130305
  Receipt Date: 20130305
  Transmission Date: 20140127
  Serious: Yes (Congenital Anomaly, Other)
  Sender: FDA-Public Use
  Company Number: GB-ABBOTT-13A-167-1057834-00

PATIENT
  Sex: Female

DRUGS (1)
  1. EPILIM [Suspect]
     Indication: MATERNAL EXPOSURE TIMING UNSPECIFIED
     Route: 064

REACTIONS (9)
  - Speech disorder developmental [Unknown]
  - Spina bifida [Not Recovered/Not Resolved]
  - Congenital brain damage [Not Recovered/Not Resolved]
  - Apnoea [Unknown]
  - Dysphagia [Unknown]
  - Limb malformation [Not Recovered/Not Resolved]
  - Spine malformation [Not Recovered/Not Resolved]
  - Foetal exposure during pregnancy [Unknown]
  - Mental retardation [Unknown]
